FAERS Safety Report 6452955-1 (Version None)
Quarter: 2009Q4

REPORT INFORMATION
  Report Type: 
  Country: None (occurrence: None)
  Receive Date: 20091124
  Receipt Date: 20091116
  Transmission Date: 20100525
  Serious: Yes (Other)
  Sender: FDA-Public Use
  Company Number: BR-PFIZER INC-2009269904

PATIENT
  Age: 30 Year
  Sex: Female
  Weight: 47.3 kg

DRUGS (4)
  1. SILDENAFIL CITRATE [Suspect]
     Indication: PULMONARY HYPERTENSION
     Dosage: 50 MG, 1X/DAY
     Route: 048
     Dates: start: 20081023
  2. CORGARD [Concomitant]
     Dosage: UNK
  3. ALDACTONE [Concomitant]
     Dosage: UNK
  4. CAPTOPRIL [Concomitant]
     Dosage: 50 MG, 1X/DAY

REACTIONS (10)
  - BLOOD PRESSURE DECREASED [None]
  - BURNING SENSATION [None]
  - CYANOSIS [None]
  - FEELING HOT [None]
  - HEADACHE [None]
  - HYPOAESTHESIA FACIAL [None]
  - HYPOAESTHESIA ORAL [None]
  - NAUSEA [None]
  - RHINITIS [None]
  - TONGUE DISORDER [None]
